FAERS Safety Report 23466081 (Version 2)
Quarter: 2024Q1

REPORT INFORMATION
  Report Type: Spontaneous
  Country: US (occurrence: US)
  Receive Date: 20240201
  Receipt Date: 20240209
  Transmission Date: 20240410
  Serious: No
  Sender: FDA-Public Use
  Company Number: US-JNJFOC-20240107288

PATIENT
  Age: 5 Decade
  Sex: Male

DRUGS (1)
  1. MENS ROGAINE EXTRA STRENGTH [Suspect]
     Active Substance: MINOXIDIL
     Indication: Alopecia
     Dosage: ONCE DAILY.
     Route: 061

REACTIONS (6)
  - Inappropriate schedule of product administration [Unknown]
  - Underdose [Unknown]
  - Suspected product tampering [Unknown]
  - Product odour abnormal [Unknown]
  - Product container issue [Unknown]
  - Product formulation issue [Unknown]
